FAERS Safety Report 16565370 (Version 1)
Quarter: 2019Q3

REPORT INFORMATION
  Report Type: Spontaneous
  Country: US (occurrence: US)
  Receive Date: 20190711
  Receipt Date: 20190711
  Transmission Date: 20191004
  Serious: No
  Sender: FDA-Public Use
  Company Number: None

PATIENT
  Sex: Female

DRUGS (1)
  1. MEPOLIZUMAB [Suspect]
     Active Substance: MEPOLIZUMAB

REACTIONS (3)
  - Injection site discolouration [None]
  - Injection site urticaria [None]
  - Injection site rash [None]

NARRATIVE: CASE EVENT DATE: 20190601
